FAERS Safety Report 7359555-X (Version None)
Quarter: 2011Q1

REPORT INFORMATION
  Report Type: 
  Country: None (occurrence: None)
  Receive Date: 20110317
  Receipt Date: 20110308
  Transmission Date: 20110831
  Serious: Yes (Hospitalization)
  Sender: FDA-Public Use
  Company Number: PHHO2010US14296

PATIENT
  Sex: Male
  Weight: 77.5 kg

DRUGS (4)
  1. MULTI-VITAMINS [Concomitant]
  2. TYLENOL-500 [Concomitant]
  3. RESTASIS [Concomitant]
  4. AFINITOR [Suspect]
     Indication: METASTATIC RENAL CELL CARCINOMA
     Dosage: 10MG
     Route: 048
     Dates: start: 20100415, end: 20100903

REACTIONS (3)
  - CHEST PAIN [None]
  - PAPILLOEDEMA [None]
  - BACK PAIN [None]
